FAERS Safety Report 5455305-2 (Version None)
Quarter: 2007Q3

REPORT INFORMATION
  Report Type: 
  Country: None (occurrence: None)
  Receive Date: 20070918
  Receipt Date: 20070910
  Transmission Date: 20080115
  Serious: Yes (Hospitalization)
  Sender: FDA-Public Use
  Company Number: US-ELI_LILLY_AND_COMPANY-US200709001813

PATIENT
  Age: 82 Year
  Sex: Female

DRUGS (2)
  1. FORTEO [Suspect]
     Dosage: UNK, UNK
     Dates: start: 20060101
  2. ADVAIR DISKUS 100/50 [Concomitant]
     Route: 055

REACTIONS (5)
  - ATRIAL FIBRILLATION [None]
  - CHEST DISCOMFORT [None]
  - CHEST PAIN [None]
  - EYE DISORDER [None]
  - INJECTION SITE HAEMORRHAGE [None]
